FAERS Safety Report 13922977 (Version 5)
Quarter: 2018Q2

REPORT INFORMATION
  Report Type: Spontaneous
  Country: US (occurrence: US)
  Receive Date: 20170830
  Receipt Date: 20180608
  Transmission Date: 20180711
  Serious: Yes (Hospitalization, Other)
  Sender: FDA-Public Use
  Company Number: US-AMGEN-USASP2017130097

PATIENT
  Sex: Male
  Weight: 67.13 kg

DRUGS (10)
  1. METHOTREXATE. [Suspect]
     Active Substance: METHOTREXATE
     Indication: INFLAMMATION
     Dosage: 20 MG, QWK
     Route: 048
     Dates: end: 201802
  2. SULFASALAZINE. [Suspect]
     Active Substance: SULFASALAZINE
     Indication: INFLAMMATION
     Dosage: 2000 MG, QD (500MG TABLETS MORNING, ANOTHER 2 ABOUT 12 HOURS LATER)
     Route: 048
  3. HUMIRA [Concomitant]
     Active Substance: ADALIMUMAB
     Indication: RHEUMATOID ARTHRITIS
  4. METHOTREXATE. [Suspect]
     Active Substance: METHOTREXATE
     Indication: RHEUMATOID ARTHRITIS
  5. FOLIC ACID. [Concomitant]
     Active Substance: FOLIC ACID
     Indication: INFLAMMATION
     Dosage: 2 MG, QD
  6. ENBREL [Suspect]
     Active Substance: ETANERCEPT
     Dosage: 50 ML, QWK
     Route: 065
     Dates: end: 201803
  7. SULFASALAZINE. [Suspect]
     Active Substance: SULFASALAZINE
     Indication: RHEUMATOID ARTHRITIS
  8. FOLIC ACID. [Concomitant]
     Active Substance: FOLIC ACID
     Indication: RHEUMATOID ARTHRITIS
  9. ENBREL [Suspect]
     Active Substance: ETANERCEPT
     Indication: INFLAMMATION
     Dosage: 50 ML, QWK
     Route: 065
  10. ENBREL [Suspect]
     Active Substance: ETANERCEPT
     Indication: RHEUMATOID ARTHRITIS
     Dosage: 15 ML, QWK
     Route: 065

REACTIONS (7)
  - Rheumatoid arthritis [Not Recovered/Not Resolved]
  - Pulmonary embolism [Unknown]
  - Eye inflammation [Unknown]
  - Inflammation [Unknown]
  - Off label use [Unknown]
  - Drug ineffective [Unknown]
  - Injection site pain [Unknown]
